FAERS Safety Report 20325336 (Version 1)
Quarter: 2022Q1

REPORT INFORMATION
  Report Type: Other
  Country: IN (occurrence: None)
  Receive Date: 20220112
  Receipt Date: 20220112
  Transmission Date: 20220423
  Serious: Yes (Other)
  Sender: FDA-Public Use
  Company Number: IN-ROCHE-2995686

PATIENT
  Age: 52 Year
  Sex: Male

DRUGS (1)
  1. ALECENSA [Suspect]
     Active Substance: ALECTINIB HYDROCHLORIDE
     Indication: Non-small cell lung cancer metastatic
     Route: 042

REACTIONS (2)
  - Cough [Unknown]
  - Tuberculosis [Unknown]
